FAERS Safety Report 8536272-1 (Version None)
Quarter: 2012Q3

REPORT INFORMATION
  Report Type: 
  Country: None (occurrence: None)
  Receive Date: 20120725
  Receipt Date: 20120718
  Transmission Date: 20120928
  Serious: Yes (Other)
  Sender: FDA-Public Use
  Company Number: JP-JNJFOC-20120710765

PATIENT

DRUGS (1)
  1. TRAMADOL HCL [Suspect]
     Indication: CANCER PAIN
     Route: 048

REACTIONS (2)
  - OFF LABEL USE [None]
  - PEPTIC ULCER [None]
